FAERS Safety Report 16788474 (Version 3)
Quarter: 2022Q1

REPORT INFORMATION
  Report Type: Spontaneous
  Country: DE (occurrence: DE)
  Receive Date: 20190910
  Receipt Date: 20220112
  Transmission Date: 20220423
  Serious: Yes (Other)
  Sender: FDA-Public Use
  Company Number: DE-AUROBINDO-AUR-APL-2019-044013

PATIENT
  Age: 43 Year
  Sex: Male
  Weight: 73 kg

DRUGS (7)
  1. CEFUROXIME [Suspect]
     Active Substance: CEFUROXIME
     Indication: Influenza
     Dosage: 1 DOSAGE FORM, TWO TIMES A DAY (UNK, 2X1)
     Route: 048
     Dates: start: 20130129
  2. CEFUROXIME [Suspect]
     Active Substance: CEFUROXIME
     Indication: Tracheitis
     Dosage: 1 DOSAGE FORMS,12 HR
     Route: 048
     Dates: start: 20130218
  3. CEFUROXIME [Suspect]
     Active Substance: CEFUROXIME
     Indication: Laryngitis
  4. CEFPODOXIME [Suspect]
     Active Substance: CEFPODOXIME
     Indication: Tracheitis
     Dosage: UNK
     Route: 048
     Dates: start: 20130319
  5. CEFPODOXIME [Suspect]
     Active Substance: CEFPODOXIME
     Indication: Laryngitis
  6. CEFIXIME [Suspect]
     Active Substance: CEFIXIME
     Indication: Laryngitis
     Dosage: UNK
     Route: 065
  7. CEFIXIME [Suspect]
     Active Substance: CEFIXIME
     Indication: Tracheitis
     Dosage: 1D (ONCE A DAY)
     Route: 065
     Dates: start: 20121211

REACTIONS (23)
  - Impaired work ability [Not Recovered/Not Resolved]
  - Appetite disorder [Unknown]
  - Rash [Unknown]
  - Memory impairment [Not Recovered/Not Resolved]
  - Visual impairment [Not Recovered/Not Resolved]
  - Fine motor skill dysfunction [Not Recovered/Not Resolved]
  - Taste disorder [Not Recovered/Not Resolved]
  - Arthralgia [Not Recovered/Not Resolved]
  - Auditory disorder [Not Recovered/Not Resolved]
  - Depression [Not Recovered/Not Resolved]
  - Gait disturbance [Not Recovered/Not Resolved]
  - Parosmia [Not Recovered/Not Resolved]
  - Myalgia [Not Recovered/Not Resolved]
  - Muscular weakness [Not Recovered/Not Resolved]
  - Dental discomfort [Unknown]
  - Pain [Unknown]
  - Adverse reaction [Not Recovered/Not Resolved]
  - Feeling abnormal [Unknown]
  - Toothache [Unknown]
  - Weight decreased [Recovering/Resolving]
  - Retinal injury [Not Recovered/Not Resolved]
  - Photopsia [Not Recovered/Not Resolved]
  - Hyperaesthesia [Unknown]

NARRATIVE: CASE EVENT DATE: 20130101
